FAERS Safety Report 5171082-7 (Version None)
Quarter: 2006Q4

REPORT INFORMATION
  Report Type: 
  Country: None (occurrence: None)
  Receive Date: 20061213
  Receipt Date: 20061012
  Transmission Date: 20070319
  Serious: Yes (Hospitalization, Other)
  Sender: FDA-Public Use
  Company Number: BE-GLAXOSMITHKLINE-B0442020A

PATIENT
  Age: 84 Year
  Sex: Male
  Weight: 75 kg

DRUGS (10)
  1. REQUIP [Suspect]
     Indication: PARKINSON'S DISEASE
     Dosage: 3MG THREE TIMES PER DAY
     Route: 048
     Dates: start: 20030610, end: 20060911
  2. BISOPROLOL FUMARATE [Concomitant]
     Dosage: 2.5MG PER DAY
     Route: 065
  3. AMIODARONE HCL [Concomitant]
     Dosage: 200MG PER DAY
  4. PRAVASTATIN [Concomitant]
     Dosage: 40MG PER DAY
  5. ASPIRIN [Concomitant]
  6. DIPYRIDAMOL [Concomitant]
  7. LISINOPRIL [Concomitant]
     Dosage: 10MG PER DAY
  8. CARBAMAZEPINE [Concomitant]
  9. LASIX [Concomitant]
     Dosage: 40MG PER DAY
     Route: 048
  10. AGGRENOX [Concomitant]
     Dosage: 400MG PER DAY

REACTIONS (5)
  - COLON CANCER [None]
  - DIARRHOEA [None]
  - FLATULENCE [None]
  - INTESTINAL DILATATION [None]
  - VOLVULUS [None]
